FAERS Safety Report 5118272-7 (Version None)
Quarter: 2006Q4

REPORT INFORMATION
  Report Type: 
  Country: None (occurrence: None)
  Receive Date: 20061002
  Receipt Date: 20060801
  Transmission Date: 20070319
  Serious: Yes (Other)
  Sender: FDA-Public Use
  Company Number: US-BRISTOL-MYERS SQUIBB COMPANY-13462288

PATIENT
  Age: 59 Year
  Sex: Female

DRUGS (5)
  1. ORENCIA [Suspect]
     Route: 042
     Dates: start: 20060628, end: 20060628
  2. PREDNISONE [Concomitant]
     Dates: start: 20040101
  3. METHOTREXATE [Concomitant]
  4. PLAQUENIL [Concomitant]
  5. LEFLUNOMIDE [Concomitant]

REACTIONS (1)
  - MALIGNANT MELANOMA [None]
